FAERS Safety Report 4598975-3 (Version None)
Quarter: 2005Q1

REPORT INFORMATION
  Report Type: 
  Country: None (occurrence: None)
  Receive Date: 20050304
  Receipt Date: 20050301
  Transmission Date: 20050727
  Serious: Yes (Hospitalization, Disabling)
  Sender: FDA-Public Use
  Company Number: US-MERCK-0503USA00199

PATIENT
  Age: 63 Year
  Sex: Female

DRUGS (2)
  1. FOSAMAX [Suspect]
     Indication: OSTEOPENIA
     Route: 048
  2. ASTELIN [Concomitant]
     Route: 065

REACTIONS (3)
  - ARTHROPATHY [None]
  - PELVIC FRACTURE [None]
  - PROCEDURAL COMPLICATION [None]
